FAERS Safety Report 6542150-X (Version None)
Quarter: 2010Q1

REPORT INFORMATION
  Report Type: 
  Country: None (occurrence: None)
  Receive Date: 20100114
  Receipt Date: 20100114
  Transmission Date: 20100710
  Serious: Yes (Hospitalization)
  Sender: FDA-Public Use
  Company Number: None

PATIENT
  Sex: Female
  Weight: 102.5 kg

DRUGS (2)
  1. CISPLATIN [Suspect]
     Dates: end: 20091221
  2. TAXOL [Suspect]
     Dates: end: 20091221

REACTIONS (6)
  - CONFUSIONAL STATE [None]
  - FUNGAL TEST POSITIVE [None]
  - HYPOTENSION [None]
  - MALNUTRITION [None]
  - RENAL FAILURE ACUTE [None]
  - SEPTIC SHOCK [None]
